FAERS Safety Report 9135581 (Version 1)
Quarter: 2013Q1

REPORT INFORMATION
  Report Type: Spontaneous
  Country: US (occurrence: US)
  Receive Date: 20130304
  Receipt Date: 20130304
  Transmission Date: 20140127
  Serious: No
  Sender: FDA-Public Use
  Company Number: US-ENDO PHARMACEUTICALS INC.-PERC20120164

PATIENT
  Sex: Female

DRUGS (4)
  1. PERCOCET [Suspect]
     Indication: PAIN
     Dosage: 40/1300 MG
     Route: 048
  2. AMLODIPINE [Concomitant]
     Route: 048
  3. BENAZEPRIL [Concomitant]
     Route: 048
  4. LYRICA [Concomitant]
     Route: 048

REACTIONS (2)
  - Tooth fracture [Recovered/Resolved]
  - Drug hypersensitivity [Not Recovered/Not Resolved]
